FAERS Safety Report 19116661 (Version 1)
Quarter: 2021Q2

REPORT INFORMATION
  Report Type: Spontaneous
  Country: US (occurrence: US)
  Receive Date: 20210409
  Receipt Date: 20210409
  Transmission Date: 20210717
  Serious: Yes (Hospitalization, Other)
  Sender: FDA-Public Use
  Company Number: US-SA-2021SA107617

PATIENT
  Age: 64 Year
  Sex: Male

DRUGS (8)
  1. CAPECITABINE. [Suspect]
     Active Substance: CAPECITABINE
     Indication: OESOPHAGEAL ADENOCARCINOMA
     Dosage: 4000 MG/M2
     Route: 042
     Dates: start: 20210107, end: 20210107
  2. CAPECITABINE. [Suspect]
     Active Substance: CAPECITABINE
     Dosage: 4000 MG/M2
     Route: 042
     Dates: start: 20210211, end: 20210211
  3. CAPECITABINE. [Suspect]
     Active Substance: CAPECITABINE
     Dosage: 3000 MG
     Route: 065
     Dates: start: 20210304
  4. OXALIPLATINE WINTHROP [Suspect]
     Active Substance: OXALIPLATIN
     Indication: OESOPHAGEAL ADENOCARCINOMA
     Dosage: 255 MG/M2
     Route: 065
     Dates: start: 20210107, end: 20210107
  5. TISLELIZUMAB [Suspect]
     Active Substance: TISLELIZUMAB
     Indication: OESOPHAGEAL ADENOCARCINOMA
     Dosage: 200 MG
     Route: 042
     Dates: start: 20210107, end: 20210107
  6. OXALIPLATINE WINTHROP [Suspect]
     Active Substance: OXALIPLATIN
     Dosage: 255 MG/M2
     Route: 065
     Dates: start: 20210211, end: 20210211
  7. OXALIPLATINE WINTHROP [Suspect]
     Active Substance: OXALIPLATIN
     Dosage: 195 MG
     Route: 065
     Dates: start: 20210304
  8. TISLELIZUMAB [Suspect]
     Active Substance: TISLELIZUMAB
     Dosage: 200 MG
     Route: 042
     Dates: start: 20210211, end: 20210211

REACTIONS (2)
  - Abdominal pain [Recovered/Resolved]
  - Diarrhoea [Recovered/Resolved]

NARRATIVE: CASE EVENT DATE: 20210212
